FAERS Safety Report 8091395-9 (Version None)
Quarter: 2012Q1

REPORT INFORMATION
  Report Type: 
  Country: None (occurrence: None)
  Receive Date: 20120129
  Receipt Date: 20111031
  Transmission Date: 20120608
  Serious: Yes (Other)
  Sender: FDA-Public Use
  Company Number: US-ABBOTT-11P-163-0871315-00

PATIENT
  Age: 65 Year
  Sex: Female

DRUGS (17)
  1. HUMIRA [Suspect]
     Indication: RHEUMATOID ARTHRITIS
     Route: 058
     Dates: start: 20020601, end: 20050101
  2. OMEPRAZOLE [Concomitant]
     Indication: PRODUCT USED FOR UNKNOWN INDICATION
     Dosage: DAILY DOSE: 40MG
  3. LOMITOL [Concomitant]
     Indication: PRODUCT USED FOR UNKNOWN INDICATION
  4. IMITREX [Concomitant]
     Indication: PRODUCT USED FOR UNKNOWN INDICATION
  5. VITAMIN B-12 [Concomitant]
     Indication: PRODUCT USED FOR UNKNOWN INDICATION
  6. MAGNESIUM [Concomitant]
     Indication: PRODUCT USED FOR UNKNOWN INDICATION
     Dosage: DAILY
  7. MULTI-VITAMIN [Concomitant]
     Indication: PRODUCT USED FOR UNKNOWN INDICATION
     Dosage: DAILY
  8. OXYCODONE HCL [Concomitant]
     Indication: PRODUCT USED FOR UNKNOWN INDICATION
  9. MOBIC [Concomitant]
     Indication: PRODUCT USED FOR UNKNOWN INDICATION
  10. HYDROXYCHLOROQUINE SULFATE [Concomitant]
     Indication: PRODUCT USED FOR UNKNOWN INDICATION
     Dosage: AT BEDTIME
  11. D3 [Concomitant]
     Indication: PRODUCT USED FOR UNKNOWN INDICATION
     Dosage: DAILY DOSE: 3000MG
  12. METHOTREXATE [Suspect]
     Indication: RHEUMATOID ARTHRITIS
     Dates: start: 20050101, end: 20110101
  13. LEVOXAL [Concomitant]
     Indication: PRODUCT USED FOR UNKNOWN INDICATION
  14. TRAMADOL HCL [Concomitant]
     Indication: PRODUCT USED FOR UNKNOWN INDICATION
  15. DIAZAPAM [Concomitant]
     Indication: PRODUCT USED FOR UNKNOWN INDICATION
  16. PRILOSEC [Concomitant]
     Indication: PRODUCT USED FOR UNKNOWN INDICATION
     Dosage: DAILY
  17. FOLIC ACID [Concomitant]
     Indication: PRODUCT USED FOR UNKNOWN INDICATION

REACTIONS (4)
  - BREAST OPERATION [None]
  - URTICARIA [None]
  - DRUG HYPERSENSITIVITY [None]
  - RHEUMATOID ARTHRITIS [None]
